FAERS Safety Report 11743731 (Version 1)
Quarter: 2015Q4

REPORT INFORMATION
  Report Type: Spontaneous
  Country: GB (occurrence: GB)
  Receive Date: 20151116
  Receipt Date: 20151116
  Transmission Date: 20160304
  Serious: Yes (Other)
  Sender: FDA-Public Use
  Company Number: PHHY2015GB144774

PATIENT
  Age: 40 Year
  Sex: Female
  Weight: 77.11 kg

DRUGS (2)
  1. CO-AMOXICLAV [Suspect]
     Active Substance: AMOXICILLIN\CLAVULANIC ACID
     Indication: VULVA CYST
     Route: 048
     Dates: start: 20151019, end: 20151022
  2. LYSINE [Concomitant]
     Active Substance: LYSINE
     Indication: PRODUCT USED FOR UNKNOWN INDICATION
     Route: 065

REACTIONS (3)
  - Haematochezia [Recovering/Resolving]
  - Vulvovaginal candidiasis [Unknown]
  - Anal candidiasis [Unknown]

NARRATIVE: CASE EVENT DATE: 20151020
